FAERS Safety Report 5236406-0 (Version None)
Quarter: 2007Q1

REPORT INFORMATION
  Report Type: 
  Country: None (occurrence: None)
  Receive Date: 20070208
  Receipt Date: 20070124
  Transmission Date: 20070707
  Serious: Yes (Death)
  Sender: FDA-Public Use
  Company Number: 2007BM000008

PATIENT
  Age: 12 Month
  Sex: Male

DRUGS (8)
  1. PREDNISOLONE [Suspect]
  2. TACROLIMUS (TACROLIMUS) [Suspect]
  3. METHYLPREDNISOLONE [Suspect]
  4. RITUXIMAB (RITUXIMAB) [Suspect]
  5. CYCLOPHOSPHAMIDE [Suspect]
  6. VINCRISTINE [Suspect]
  7. DOXORUBICIN HCL [Suspect]
  8. ORAPRED [Suspect]

REACTIONS (10)
  - ANAEMIA [None]
  - DIFFUSE LARGE B-CELL LYMPHOMA [None]
  - HEPATIC ENZYME INCREASED [None]
  - LYMPHOPROLIFERATIVE DISORDER [None]
  - MELAENA [None]
  - METASTASES TO KIDNEY [None]
  - METASTASES TO LUNG [None]
  - METASTASES TO LYMPH NODES [None]
  - SEPSIS [None]
  - SYSTEMIC CANDIDA [None]
